FAERS Safety Report 7423140-1 (Version None)
Quarter: 2011Q2

REPORT INFORMATION
  Report Type: 
  Country: None (occurrence: None)
  Receive Date: 20110419
  Receipt Date: 20110411
  Transmission Date: 20111010
  Serious: Yes (Other)
  Sender: FDA-Public Use
  Company Number: US-JNJFOC-20110405662

PATIENT
  Age: 87 Year
  Sex: Male

DRUGS (1)
  1. LEVAQUIN [Suspect]
     Indication: INFECTION PROPHYLAXIS
     Route: 048

REACTIONS (6)
  - ARTHRALGIA [None]
  - INSOMNIA [None]
  - DIZZINESS [None]
  - NAUSEA [None]
  - BLOOD URINE PRESENT [None]
  - PAIN IN EXTREMITY [None]
